FAERS Safety Report 4404957-4 (Version None)
Quarter: 2004Q3

REPORT INFORMATION
  Report Type: 
  Country: None (occurrence: None)
  Receive Date: 20040722
  Receipt Date: 20040713
  Transmission Date: 20050211
  Serious: Yes (Hospitalization)
  Sender: FDA-Public Use
  Company Number: CH-MERCK-0407CHE00023

PATIENT
  Age: 72 Year
  Sex: Male

DRUGS (2)
  1. VIOXX [Suspect]
     Indication: BURSITIS
     Route: 048
     Dates: start: 20040525, end: 20040601
  2. VIOXX [Suspect]
     Route: 048
     Dates: start: 20040101

REACTIONS (1)
  - BURSITIS [None]
